FAERS Safety Report 6197296-5 (Version None)
Quarter: 2009Q2

REPORT INFORMATION
  Report Type: 
  Country: None (occurrence: None)
  Receive Date: 20090521
  Receipt Date: 20090514
  Transmission Date: 20091009
  Serious: Yes (Other)
  Sender: FDA-Public Use
  Company Number: DE-JNJFOC-20090501617

PATIENT
  Age: 60 Year
  Sex: Male

DRUGS (1)
  1. IMODIUM [Suspect]
     Indication: DIARRHOEA
     Dosage: INITIATED SINCE MORE THAN 20 YEARS
     Route: 065

REACTIONS (1)
  - DRUG DEPENDENCE [None]
